FAERS Safety Report 8582086-6 (Version None)
Quarter: 2012Q3

REPORT INFORMATION
  Report Type: 
  Country: None (occurrence: None)
  Receive Date: 20120809
  Receipt Date: 20120803
  Transmission Date: 20120928
  Serious: Yes (Other)
  Sender: FDA-Public Use
  Company Number: BR-PFIZER INC-2012189053

PATIENT
  Age: 50 Year
  Sex: Female
  Weight: 80 kg

DRUGS (1)
  1. PRISTIQ [Suspect]
     Indication: PANIC DISORDER
     Dosage: UNK
     Route: 048
     Dates: start: 20120727

REACTIONS (9)
  - AGGRESSION [None]
  - INSOMNIA [None]
  - TRACHEAL DISORDER [None]
  - HYPERTENSION [None]
  - SKIN BURNING SENSATION [None]
  - PALPITATIONS [None]
  - VERTIGO [None]
  - DIZZINESS [None]
  - BACK PAIN [None]
